FAERS Safety Report 15618265 (Version 3)
Quarter: 2019Q1

REPORT INFORMATION
  Report Type: Spontaneous
  Country: JP (occurrence: JP)
  Receive Date: 20181114
  Receipt Date: 20190102
  Transmission Date: 20190417
  Serious: Yes (Other)
  Sender: FDA-Public Use
  Company Number: JP-GUERBET-JP-20180291

PATIENT

DRUGS (6)
  1. LIPIODOL [Suspect]
     Active Substance: ETHIODIZED OIL
     Indication: TRANSCATHETER ARTERIAL CHEMOEMBOLISATION
     Route: 013
  2. EPIRUBICIN [Suspect]
     Active Substance: EPIRUBICIN
     Indication: TRANSCATHETER ARTERIAL CHEMOEMBOLISATION
     Route: 013
  3. GELATIN [Concomitant]
     Active Substance: GELATIN
     Indication: TRANSCATHETER ARTERIAL CHEMOEMBOLISATION
     Route: 013
  4. IOPAMIDOL [Concomitant]
     Active Substance: IOPAMIDOL
     Indication: ANGIOGRAM
     Route: 013
  5. MIRIPLATIN [Suspect]
     Active Substance: MIRIPLATIN
     Indication: TRANSCATHETER ARTERIAL CHEMOEMBOLISATION
     Route: 013
  6. HEPARIN [Concomitant]
     Active Substance: HEPARIN SODIUM
     Indication: ANGIOGRAM
     Route: 013

REACTIONS (1)
  - Transaminases increased [Recovered/Resolved]
